FAERS Safety Report 17928590 (Version 1)
Quarter: 2020Q2

REPORT INFORMATION
  Report Type: Spontaneous
  Country: US (occurrence: US)
  Receive Date: 20200622
  Receipt Date: 20200622
  Transmission Date: 20200714
  Serious: No
  Sender: FDA-Public Use
  Company Number: None

PATIENT
  Age: 33 Year
  Sex: Female
  Weight: 67.5 kg

DRUGS (2)
  1. ZYRTEC [Concomitant]
     Active Substance: CETIRIZINE HYDROCHLORIDE
  2. SANZIDERM ANTISEPTIC HAND SANITIZER 8OZ [Suspect]
     Active Substance: ALCOHOL
     Indication: INFECTION PROPHYLAXIS
     Dosage: ?          QUANTITY:1 TABLESPOON(S);?
     Route: 061
     Dates: start: 20200601, end: 20200605

REACTIONS (3)
  - Skin burning sensation [None]
  - Skin discolouration [None]
  - Product odour abnormal [None]

NARRATIVE: CASE EVENT DATE: 20200605
